FAERS Safety Report 11577390 (Version 2)
Quarter: 2016Q1

REPORT INFORMATION
  Report Type: Report from Study
  Country: US (occurrence: US)
  Receive Date: 20150930
  Receipt Date: 20160225
  Transmission Date: 20160525
  Serious: Yes (Other)
  Sender: FDA-Public Use
  Company Number: US-GILEAD-2015-0174611

PATIENT
  Age: 71 Year
  Sex: Female

DRUGS (3)
  1. AMBRISENTAN [Suspect]
     Active Substance: AMBRISENTAN
     Indication: PRODUCT USED FOR UNKNOWN INDICATION
     Dosage: 10 MG, QD
     Route: 065
     Dates: start: 20150811
  2. WARFARIN [Concomitant]
     Active Substance: WARFARIN
  3. DILTIAZEM [Concomitant]
     Active Substance: DILTIAZEM

REACTIONS (2)
  - Weight increased [Recovering/Resolving]
  - Breast cancer [Unknown]
